FAERS Safety Report 5135328-3 (Version None)
Quarter: 2006Q4

REPORT INFORMATION
  Report Type: 
  Country: None (occurrence: None)
  Receive Date: 20061024
  Receipt Date: 20061024
  Transmission Date: 20070319
  Serious: Yes (Life-Threatening, Hospitalization)
  Sender: FDA-Public Use
  Company Number: None

PATIENT
  Age: 56 Year
  Sex: Female
  Weight: 75 kg

DRUGS (3)
  1. WARFARIN SODIUM [Suspect]
     Indication: ATRIAL FLUTTER
     Dosage: 5 MG DAILY PO
     Route: 048
     Dates: start: 20060825, end: 20061020
  2. WARFARIN SODIUM [Suspect]
     Indication: CARDIAC ABLATION
     Dosage: 5 MG DAILY PO
     Route: 048
     Dates: start: 20060825, end: 20061020
  3. WARFARIN SODIUM [Suspect]
     Indication: MITRAL VALVE REPLACEMENT
     Dosage: 5 MG DAILY PO
     Route: 048
     Dates: start: 20060825, end: 20061020

REACTIONS (13)
  - BLOOD PRESSURE INADEQUATELY CONTROLLED [None]
  - CEREBELLAR HAEMATOMA [None]
  - CEREBELLAR SYNDROME [None]
  - HEADACHE [None]
  - HEART RATE INCREASED [None]
  - HYPERTENSION [None]
  - INTERNATIONAL NORMALISED RATIO INCREASED [None]
  - NAUSEA [None]
  - NERVOUS SYSTEM DISORDER [None]
  - NYSTAGMUS [None]
  - RESPIRATORY FAILURE [None]
  - THROMBOSIS [None]
  - VOMITING [None]
